FAERS Safety Report 17193952 (Version 2)
Quarter: 2020Q1

REPORT INFORMATION
  Report Type: Report from Study
  Country: None (occurrence: FR)
  Receive Date: 20191223
  Receipt Date: 20200114
  Transmission Date: 20200409
  Serious: Yes (Hospitalization, Other)
  Sender: FDA-Public Use
  Company Number: FR-ABBVIE-19K-056-2934799-00

PATIENT
  Sex: Male

DRUGS (1)
  1. DUODOPA [Suspect]
     Active Substance: CARBIDOPA\LEVODOPA
     Indication: PARKINSON^S DISEASE
     Route: 050
     Dates: start: 201811

REACTIONS (5)
  - Restlessness [Unknown]
  - Device dislocation [Recovered/Resolved]
  - Wrong technique in device usage process [Unknown]
  - Pneumonia [Unknown]
  - Agitation [Unknown]

NARRATIVE: CASE EVENT DATE: 2019
